FAERS Safety Report 17449150 (Version 2)
Quarter: 2020Q1

REPORT INFORMATION
  Report Type: Spontaneous
  Country: US (occurrence: US)
  Receive Date: 20200224
  Receipt Date: 20200304
  Transmission Date: 20200409
  Serious: No
  Sender: FDA-Public Use
  Company Number: US-TEVA-2020-US-1185593

PATIENT
  Age: 16 Year
  Sex: Female
  Weight: 66.8 kg

DRUGS (8)
  1. LEXAPRO [Concomitant]
     Active Substance: ESCITALOPRAM OXALATE
     Dosage: 7.5 MG
     Route: 065
  2. VITAMIN B2 [Concomitant]
     Active Substance: RIBOFLAVIN
     Route: 065
  3. COQ10 [Concomitant]
     Active Substance: UBIDECARENONE
     Route: 065
  4. MAGNESIUM OXIDE. [Concomitant]
     Active Substance: MAGNESIUM OXIDE
     Route: 065
  5. AJOVY [Suspect]
     Active Substance: FREMANEZUMAB-VFRM
     Indication: MIGRAINE
     Dosage: QUARTERLY
     Route: 065
     Dates: start: 20191030
  6. TRAZODONE [Concomitant]
     Active Substance: TRAZODONE HYDROCHLORIDE
     Route: 065
  7. VITAMIN D [Concomitant]
     Active Substance: VITAMIN D NOS
     Route: 065
  8. VALERIAN ROOT [Concomitant]
     Active Substance: VALERIAN
     Route: 065

REACTIONS (5)
  - Product use issue [Unknown]
  - Product prescribing error [Unknown]
  - Myalgia [Not Recovered/Not Resolved]
  - Chest pain [Not Recovered/Not Resolved]
  - Blood pressure increased [Not Recovered/Not Resolved]

NARRATIVE: CASE EVENT DATE: 20200204
